FAERS Safety Report 7318770-1 (Version None)
Quarter: 2011Q1

REPORT INFORMATION
  Report Type: 
  Country: None (occurrence: None)
  Receive Date: 20110228
  Receipt Date: 20100506
  Transmission Date: 20110831
  Serious: No
  Sender: FDA-Public Use
  Company Number: A0855765A

PATIENT
  Sex: Female

DRUGS (2)
  1. IMITREX [Suspect]
     Route: 065
  2. PREVACID [Suspect]
     Route: 065

REACTIONS (2)
  - DRUG INTERACTION [None]
  - DRUG INEFFECTIVE [None]
